FAERS Safety Report 9687755 (Version 2)
Quarter: 2014Q1

REPORT INFORMATION
  Report Type: Spontaneous
  Country: US (occurrence: US)
  Receive Date: 20131114
  Receipt Date: 20140320
  Transmission Date: 20141002
  Serious: No
  Sender: FDA-Public Use
  Company Number: US-PFIZER INC-2013322755

PATIENT
  Age: 44 Year
  Sex: Female

DRUGS (9)
  1. ZOLOFT [Suspect]
     Dosage: UNK
  2. INDERAL [Suspect]
     Dosage: UNK
  3. VIBRAMYCIN [Suspect]
     Dosage: UNK
  4. PREDNISONE [Suspect]
     Dosage: UNK
  5. AMOXICILLIN [Suspect]
     Dosage: UNK
  6. CELEXA [Suspect]
     Dosage: UNK
  7. KEFLEX [Suspect]
     Dosage: UNK
  8. WELLBUTRIN [Suspect]
     Dosage: UNK
  9. BACTRIM [Suspect]
     Dosage: UNK

REACTIONS (1)
  - Drug hypersensitivity [Unknown]
